FAERS Safety Report 15765915 (Version 4)
Quarter: 2020Q2

REPORT INFORMATION
  Report Type: Spontaneous
  Country: US (occurrence: US)
  Receive Date: 20181227
  Receipt Date: 20200625
  Transmission Date: 20200713
  Serious: No
  Sender: FDA-Public Use
  Company Number: US-SA-2018SA390049

PATIENT

DRUGS (4)
  1. TAXOTERE [Suspect]
     Active Substance: DOCETAXEL
     Indication: BREAST CANCER STAGE II
     Dosage: 138 MG, Q3W
     Dates: start: 20150401, end: 20150401
  2. PARAPLATIN [Concomitant]
     Active Substance: CARBOPLATIN
     Indication: BREAST CANCER STAGE II
  3. HERCEPTIN [Concomitant]
     Active Substance: TRASTUZUMAB
     Indication: BREAST CANCER STAGE II
     Dosage: UNK
     Dates: start: 2015, end: 2017
  4. TAXOTERE [Suspect]
     Active Substance: DOCETAXEL
     Dosage: 138 MG, Q3W
     Dates: start: 20150730, end: 20150730

REACTIONS (2)
  - Emotional distress [Unknown]
  - Psychological trauma [Unknown]
